FAERS Safety Report 8919861 (Version 1)
Quarter: 2012Q4

REPORT INFORMATION
  Report Type: Spontaneous
  Country: MX (occurrence: None)
  Receive Date: 20121114
  Receipt Date: 20121114
  Transmission Date: 20130627
  Serious: No
  Sender: FDA-Public Use
  Company Number: 1210MEX014061

PATIENT
  Age: 38 Year
  Sex: Female

DRUGS (1)
  1. CEDAX [Suspect]
     Indication: UTERINE INVERSION
     Route: 048

REACTIONS (2)
  - Drug ineffective [None]
  - Pathogen resistance [None]
